FAERS Safety Report 14320446 (Version 2)
Quarter: 2018Q1

REPORT INFORMATION
  Report Type: Spontaneous
  Country: HU (occurrence: HU)
  Receive Date: 20171222
  Receipt Date: 20180116
  Transmission Date: 20180509
  Serious: Yes (Other)
  Sender: FDA-Public Use
  Company Number: HU-ALLERGAN-1771920US

PATIENT
  Age: 32 Year
  Sex: Female

DRUGS (1)
  1. LEVONORGESTREL - BP [Suspect]
     Active Substance: LEVONORGESTREL
     Indication: CONTRACEPTION
     Dosage: 52 MG, SINGLE
     Route: 015
     Dates: start: 20170330, end: 20171115

REACTIONS (3)
  - Abortion [Unknown]
  - Drug ineffective [Unknown]
  - Pregnancy [Unknown]

NARRATIVE: CASE EVENT DATE: 201709
